FAERS Safety Report 19301346 (Version 1)
Quarter: 2021Q2

REPORT INFORMATION
  Report Type: Spontaneous
  Country: US (occurrence: US)
  Receive Date: 20210525
  Receipt Date: 20210525
  Transmission Date: 20210717
  Serious: Yes (Hospitalization)
  Sender: FDA-Public Use
  Company Number: US-MYLANLABS-2021M1030261

PATIENT
  Age: 30 Year
  Sex: Female
  Weight: 67 kg

DRUGS (9)
  1. FENTANYL. [Suspect]
     Active Substance: FENTANYL
     Indication: LABOUR PAIN
  2. ROPIVACAINE. [Suspect]
     Active Substance: ROPIVACAINE HYDROCHLORIDE
     Indication: EPIDURAL ANALGESIA
     Dosage: 7 MILLILITER RECEIVED BOLUS OF ROPIVACAINE ..
     Route: 008
  3. LIDOCAINE. [Suspect]
     Active Substance: LIDOCAINE
     Indication: EPIDURAL ANALGESIA
     Dosage: 5 MILLILITERRECEIVED EPIDURAL BOLUS OF..
     Route: 008
  4. LIDOCAINE. [Suspect]
     Active Substance: LIDOCAINE
     Indication: LABOUR PAIN
  5. FENTANYL. [Suspect]
     Active Substance: FENTANYL
     Indication: EPIDURAL ANALGESIA
     Dosage: SHE RECEIVED CONTROLLED EPIDURAL..
     Route: 008
  6. LIDOCAINE HYDROCHLORIDE AND EPINEPHRINE [Suspect]
     Active Substance: EPINEPHRINE\LIDOCAINE HYDROCHLORIDE
     Indication: DRUG PROVOCATION TEST
     Dosage: 3 MILLILITERRECEIVED LIDOCAINE 1.5%..
     Route: 008
  7. FENTANYL. [Suspect]
     Active Substance: FENTANYL
     Indication: SPINAL ANAESTHESIA
     Dosage: 20 MICROGRAM
     Route: 037
  8. FENTANYL. [Suspect]
     Active Substance: FENTANYL
     Indication: LABOUR PAIN
  9. ROPIVACAINE. [Suspect]
     Active Substance: ROPIVACAINE HYDROCHLORIDE
     Indication: LABOUR PAIN
     Dosage: SHE RECEIVED A CONTROLLED EPIDURAL ANALGESIC INFUSION OF ROPIVACAINE..
     Route: 008

REACTIONS (4)
  - Horner^s syndrome [Recovered/Resolved]
  - Maternal exposure during pregnancy [Recovered/Resolved]
  - Nerve block [Recovered/Resolved]
  - Brachial plexus injury [Recovered/Resolved]
